FAERS Safety Report 17329140 (Version 4)
Quarter: 2020Q1

REPORT INFORMATION
  Report Type: Spontaneous
  Country: JP (occurrence: JP)
  Receive Date: 20200127
  Receipt Date: 20200224
  Transmission Date: 20200409
  Serious: Yes (Other)
  Sender: FDA-Public Use
  Company Number: JP-BAYER-2019-210459

PATIENT
  Age: 47 Year
  Sex: Female
  Weight: 60 kg

DRUGS (1)
  1. MIRENA [Suspect]
     Active Substance: LEVONORGESTREL
     Indication: MENORRHAGIA
     Dosage: 20 MCG/24HR, CONT
     Route: 015
     Dates: start: 20160923, end: 20190828

REACTIONS (11)
  - Complication of device removal [None]
  - Medical device site paraesthesia [None]
  - Cervix inflammation [None]
  - Embedded device [Recovered/Resolved]
  - Device expulsion [None]
  - Complication of device removal [Unknown]
  - Medical device site paraesthesia [None]
  - Device breakage [Unknown]
  - Metrorrhagia [None]
  - Cervical dysplasia [None]
  - Fungal test positive [None]

NARRATIVE: CASE EVENT DATE: 20171122
